FAERS Safety Report 24590362 (Version 1)
Quarter: 2024Q4

REPORT INFORMATION
  Report Type: Spontaneous
  Country: US (occurrence: US)
  Receive Date: 20241107
  Receipt Date: 20241107
  Transmission Date: 20250115
  Serious: No
  Sender: BRISTOL-MYERS SQUIBB COMPANY
  Company Number: US-BRISTOL-MYERS SQUIBB COMPANY-2024-173932

PATIENT
  Age: 76 Year
  Sex: Female

DRUGS (1)
  1. ORENCIA [Suspect]
     Active Substance: ABATACEPT
     Indication: Product used for unknown indication
     Dosage: FREQUENCY: D1, 15 F/B Q 28 DAYS.
     Route: 042

REACTIONS (3)
  - Pain [Unknown]
  - Joint swelling [Unknown]
  - Off label use [Unknown]

NARRATIVE: CASE EVENT DATE: 20240701
